FAERS Safety Report 15309118 (Version 1)
Quarter: 2018Q3

REPORT INFORMATION
  Report Type: Spontaneous
  Country: US (occurrence: US)
  Receive Date: 20180811
  Receipt Date: 20180811
  Transmission Date: 20181010
  Serious: Yes (Disabling)
  Sender: FDA-Public Use
  Company Number: None

PATIENT
  Age: 74 Year
  Sex: Male
  Weight: 72.9 kg

DRUGS (7)
  1. LACOSAMIDE. [Concomitant]
     Active Substance: LACOSAMIDE
  2. TRAVATAN Z [Suspect]
     Active Substance: TRAVOPROST
     Indication: GLAUCOMA
     Dosage: ?          QUANTITY:1 DROP(S);?
     Route: 047
     Dates: start: 20100331, end: 20180807
  3. CRBAMAZEPINE ER [Concomitant]
  4. VITAMIN D3 [Concomitant]
     Active Substance: CHOLECALCIFEROL
  5. BABY ASPIRIN [Concomitant]
     Active Substance: ASPIRIN
  6. LEVETIRACETAM. [Concomitant]
     Active Substance: LEVETIRACETAM
  7. VITAMIN B12 [Concomitant]
     Active Substance: CYANOCOBALAMIN

REACTIONS (4)
  - Cough [None]
  - Drug dose omission [None]
  - Dysphagia [None]
  - Balance disorder [None]

NARRATIVE: CASE EVENT DATE: 20180808
